FAERS Safety Report 12691126 (Version 7)
Quarter: 2016Q4

REPORT INFORMATION
  Report Type: Spontaneous
  Country: DE (occurrence: DE)
  Receive Date: 20160826
  Receipt Date: 20161116
  Transmission Date: 20170207
  Serious: Yes (Death, Hospitalization, Disabling)
  Sender: FDA-Public Use
  Company Number: DE-BAYER-2016-162158

PATIENT
  Age: 68 Year
  Sex: Male
  Weight: 80 kg

DRUGS (5)
  1. RADIUM-223 DICHLORIDE [Suspect]
     Active Substance: RADIUM RA-223 DICHLORIDE
     Indication: PROSTATE CANCER STAGE IV
     Dosage: UNK
     Dates: start: 20160314, end: 20160314
  2. DOCETAXEL. [Concomitant]
     Active Substance: DOCETAXEL
     Indication: BONE MARROW FAILURE
  3. RADIUM-223 DICHLORIDE [Suspect]
     Active Substance: RADIUM RA-223 DICHLORIDE
     Indication: METASTASES TO BONE
     Dosage: UNK
     Dates: start: 20160412, end: 20160412
  4. ZYTIGA [Concomitant]
     Active Substance: ABIRATERONE ACETATE
     Dosage: UNK
     Dates: start: 201505
  5. RADIUM-223 DICHLORIDE [Suspect]
     Active Substance: RADIUM RA-223 DICHLORIDE
     Indication: PROSTATE CANCER STAGE IV
     Dosage: UNK
     Dates: start: 20160511, end: 20160511

REACTIONS (6)
  - Prostate cancer stage IV [Fatal]
  - Aspiration [Fatal]
  - Pancytopenia [Fatal]
  - Thrombocytopenia [None]
  - Anaemia [None]
  - Asphyxia [Fatal]

NARRATIVE: CASE EVENT DATE: 201608
